FAERS Safety Report 11668358 (Version 1)
Quarter: 2015Q4

REPORT INFORMATION
  Report Type: Spontaneous
  Country: GB (occurrence: GB)
  Receive Date: 20151027
  Receipt Date: 20151027
  Transmission Date: 20160304
  Serious: Yes (Disabling)
  Sender: FDA-Public Use
  Company Number: GB-PFIZER INC-2015355594

PATIENT
  Age: 26 Year
  Sex: Male

DRUGS (3)
  1. CHAMPIX [Suspect]
     Active Substance: VARENICLINE TARTRATE
     Indication: SMOKING CESSATION THERAPY
     Route: 048
     Dates: start: 20150921, end: 20151002
  2. RISPERIDONE. [Concomitant]
     Active Substance: RISPERIDONE
  3. SODIUM VALPROATE [Concomitant]
     Active Substance: VALPROATE SODIUM

REACTIONS (5)
  - Depressed mood [Unknown]
  - Psychiatric symptom [Recovered/Resolved with Sequelae]
  - Aggression [Recovered/Resolved with Sequelae]
  - Anxiety [Recovered/Resolved with Sequelae]
  - Withdrawal syndrome [Unknown]

NARRATIVE: CASE EVENT DATE: 20150925
